FAERS Safety Report 8248160-9 (Version None)
Quarter: 2012Q1

REPORT INFORMATION
  Report Type: 
  Country: None (occurrence: None)
  Receive Date: 20120330
  Receipt Date: 20120316
  Transmission Date: 20120608
  Serious: Yes (Death, Other)
  Sender: FDA-Public Use
  Company Number: GB-CELGENEUS-167-21880-12030829

PATIENT

DRUGS (2)
  1. REVLIMID [Suspect]
     Indication: CHRONIC LYMPHOCYTIC LEUKAEMIA
     Route: 048
     Dates: start: 20110601
  2. REVLIMID [Suspect]
     Dosage: 5-10 MG
     Route: 048

REACTIONS (2)
  - TUMOUR FLARE [None]
  - CHRONIC LYMPHOCYTIC LEUKAEMIA REFRACTORY [None]
